FAERS Safety Report 5924085-6 (Version None)
Quarter: 2008Q4

REPORT INFORMATION
  Report Type: 
  Country: None (occurrence: None)
  Receive Date: 20081015
  Receipt Date: 20080929
  Transmission Date: 20090506
  Serious: Yes (Other)
  Sender: FDA-Public Use
  Company Number: 2008S1017675

PATIENT
  Age: 36 Year
  Sex: Male

DRUGS (4)
  1. ZOLPIDEM TARTRATE [Suspect]
     Indication: INSOMNIA
     Dosage: 5 MG; ORAL;
     Route: 048
     Dates: start: 20080801, end: 20080901
  2. COZAAR (LOSARTAN POTASSIUM) (CON.) [Concomitant]
  3. LAMOTRIGINE (LAMOTRIGINE) (CON.) [Concomitant]
  4. NIFEDIPINE (NIFEDIPINE) (CON.) [Concomitant]

REACTIONS (1)
  - PSYCHOTIC DISORDER [None]
